FAERS Safety Report 4300486-7 (Version None)
Quarter: 2004Q1

REPORT INFORMATION
  Report Type: 
  Country: None (occurrence: None)
  Receive Date: 20040217
  Receipt Date: 20040203
  Transmission Date: 20041129
  Serious: Yes (Hospitalization, Other)
  Sender: FDA-Public Use
  Company Number: 2004007321

PATIENT
  Age: 74 Year
  Sex: Female

DRUGS (7)
  1. LIPITOR [Suspect]
     Indication: HYPERLIPIDAEMIA
     Dosage: 5 MG (DAILY), ORAL
     Route: 048
     Dates: start: 20020823, end: 20040202
  2. BROTIZOLAM (BROTIZOLAM) [Concomitant]
  3. AMLODIPINE BESYLATE [Concomitant]
  4. SENNA LEAF (SENNA LEAF) [Concomitant]
  5. ROXATIDINE ACETATE HCL [Concomitant]
  6. MAGNESIUM OXIDE (MAGNESIUM OXIDE) [Concomitant]
  7. RHUBARB [Concomitant]

REACTIONS (4)
  - ACTIVITIES OF DAILY LIVING IMPAIRED [None]
  - CEREBRAL ATHEROSCLEROSIS [None]
  - PARKINSON'S DISEASE [None]
  - RHABDOMYOLYSIS [None]
